FAERS Safety Report 5590368-5 (Version None)
Quarter: 2008Q1

REPORT INFORMATION
  Report Type: 
  Country: None (occurrence: None)
  Receive Date: 20080114
  Receipt Date: 20080108
  Transmission Date: 20080703
  Serious: Yes (Other)
  Sender: FDA-Public Use
  Company Number: NL-ROXANE LABORATORIES, INC-2008-BP-00392RO

PATIENT
  Age: 32 Year
  Sex: Male

DRUGS (1)
  1. ZOLPIDEM [Suspect]
     Indication: INVESTIGATION

REACTIONS (6)
  - ABNORMAL BEHAVIOUR [None]
  - DIPLOPIA [None]
  - DIZZINESS [None]
  - DYSPHASIA [None]
  - NAUSEA [None]
  - SOMNOLENCE [None]
